FAERS Safety Report 18551602 (Version 1)
Quarter: 2020Q4

REPORT INFORMATION
  Report Type: Spontaneous
  Country: US (occurrence: US)
  Receive Date: 20201126
  Receipt Date: 20201126
  Transmission Date: 20210114
  Serious: Yes (Life-Threatening, Hospitalization)
  Sender: FDA-Public Use
  Company Number: US-TEVA-2020-US-1851417

PATIENT
  Age: 77 Year
  Sex: Male

DRUGS (3)
  1. AMIODARONE [Suspect]
     Active Substance: AMIODARONE
     Indication: VENTRICULAR TACHYCARDIA
     Route: 065
  2. QUINIDINE [Suspect]
     Active Substance: QUINIDINE
     Indication: VENTRICULAR TACHYCARDIA
     Route: 065
  3. MEXILETINE [Suspect]
     Active Substance: MEXILETINE
     Indication: VENTRICULAR TACHYCARDIA
     Route: 065

REACTIONS (1)
  - Drug ineffective [Unknown]
